FAERS Safety Report 5731451-0 (Version None)
Quarter: 2008Q2

REPORT INFORMATION
  Report Type: 
  Country: None (occurrence: None)
  Receive Date: 20080508
  Receipt Date: 20080430
  Transmission Date: 20081010
  Serious: Yes (Other)
  Sender: FDA-Public Use
  Company Number: US-ASTRAZENECA-2008UW08747

PATIENT
  Age: 51 Year
  Sex: Female
  Weight: 45.5 kg

DRUGS (7)
  1. SEROQUEL [Suspect]
     Indication: SLEEP DISORDER
     Route: 048
  2. SEROQUEL [Suspect]
     Indication: DEPRESSION
     Route: 048
  3. LYRICA [Suspect]
     Indication: FIBROMYALGIA
     Dates: start: 20071001, end: 20071201
  4. CYMBALTA [Concomitant]
  5. WELLBUTRIN XL [Concomitant]
  6. REQUIP [Concomitant]
     Indication: RESTLESS LEGS SYNDROME
  7. VICODIN [Concomitant]

REACTIONS (4)
  - DYSARTHRIA [None]
  - FALL [None]
  - FEELING ABNORMAL [None]
  - LOSS OF CONSCIOUSNESS [None]
